FAERS Safety Report 21573031 (Version 1)
Quarter: 2022Q4

REPORT INFORMATION
  Report Type: Spontaneous
  Country: US (occurrence: None)
  Receive Date: 20221108
  Receipt Date: 20221108
  Transmission Date: 20230113
  Serious: No
  Sender: FDA-Public Use
  Company Number: None

PATIENT
  Age: 83 Year
  Sex: Male
  Weight: 76.2 kg

DRUGS (16)
  1. ABIRATERONE [Suspect]
     Active Substance: ABIRATERONE
     Indication: Prostate cancer
     Dosage: FREQUENCY : DAILY;?
     Route: 048
     Dates: start: 20220113
  2. ACETAMINOPHEN [Concomitant]
  3. ASPIRIN [Concomitant]
     Active Substance: ASPIRIN
  4. BETAMETHASONE [Concomitant]
  5. CALCIUM 600+D3 [Concomitant]
  6. CENTRUM SILVER [Concomitant]
  7. CETIRIZINE [Concomitant]
  8. DONEPEZIL [Concomitant]
  9. IBANDRONATE [Concomitant]
  10. LOSARTAN [Concomitant]
  11. OMEPRAZOLE [Concomitant]
  12. POLYETHYLENE [Concomitant]
  13. PREDNISONE [Concomitant]
  14. SUCRALFATE [Concomitant]
  15. TAMSULOSIN [Concomitant]
  16. VITAMIN D3 [Concomitant]
     Active Substance: CHOLECALCIFEROL

REACTIONS (1)
  - Disease progression [None]
